FAERS Safety Report 14991872 (Version 5)
Quarter: 2018Q3

REPORT INFORMATION
  Report Type: Spontaneous
  Country: US (occurrence: US)
  Receive Date: 20180608
  Receipt Date: 20180816
  Transmission Date: 20181010
  Serious: Yes (Hospitalization)
  Sender: FDA-Public Use
  Company Number: US-ACTELION-A-NJ2018-173365

PATIENT
  Age: 78 Year
  Sex: Male
  Weight: 79.82 kg

DRUGS (3)
  1. VELETRI [Suspect]
     Active Substance: EPOPROSTENOL
     Indication: PULMONARY ARTERIAL HYPERTENSION
     Dosage: 5.5 NG/KG, PER MIN
     Route: 042
  2. WARFARIN [Concomitant]
     Active Substance: WARFARIN
  3. OPSUMIT [Concomitant]
     Active Substance: MACITENTAN

REACTIONS (7)
  - Streptococcal infection [Unknown]
  - Sepsis [Unknown]
  - Hypotension [Unknown]
  - Arthritis infective [Unknown]
  - Knee operation [Unknown]
  - Dehydration [Unknown]
  - Arthritis bacterial [Unknown]
